FAERS Safety Report 5046237-2 (Version None)
Quarter: 2006Q3

REPORT INFORMATION
  Report Type: 
  Country: None (occurrence: None)
  Receive Date: 20060710
  Receipt Date: 20060628
  Transmission Date: 20061208
  Serious: Yes (Death)
  Sender: FDA-Public Use
  Company Number: US-BRISTOL-MYERS SQUIBB COMPANY-13427463

PATIENT
  Age: 35 Year
  Sex: Male

DRUGS (1)
  1. BUSPAR [Suspect]

REACTIONS (2)
  - COMPLETED SUICIDE [None]
  - URINARY RETENTION [None]
